FAERS Safety Report 11980526 (Version 2)
Quarter: 2016Q1

REPORT INFORMATION
  Report Type: Report from Study
  Country: ES (occurrence: ES)
  Receive Date: 20160129
  Receipt Date: 20160205
  Transmission Date: 20160526
  Serious: Yes (Death, Hospitalization, Other)
  Sender: FDA-Public Use
  Company Number: ES-ABBVIE-16P-144-1546716-00

PATIENT
  Age: 78 Year
  Sex: Female

DRUGS (1)
  1. DUODOPA [Suspect]
     Active Substance: CARBIDOPA\LEVODOPA
     Indication: PARKINSON^S DISEASE
     Route: 050
     Dates: start: 201212

REACTIONS (9)
  - Cerebrovascular accident [Unknown]
  - Terminal state [Unknown]
  - Apallic syndrome [Unknown]
  - Malnutrition [Not Recovered/Not Resolved]
  - Dysphagia [Not Recovered/Not Resolved]
  - Decubitus ulcer [Not Recovered/Not Resolved]
  - Hypophagia [Unknown]
  - Death [Fatal]
  - Epilepsy [Unknown]

NARRATIVE: CASE EVENT DATE: 2016
